FAERS Safety Report 10096748 (Version 3)
Quarter: 2014Q2

REPORT INFORMATION
  Report Type: Spontaneous
  Country: US (occurrence: US)
  Receive Date: 20140422
  Receipt Date: 20140603
  Transmission Date: 20141212
  Serious: Yes (Other)
  Sender: FDA-Public Use
  Company Number: CHPA2014US005517

PATIENT
  Age: 76 Year
  Sex: Female

DRUGS (5)
  1. TRANSDERM SCOP [Suspect]
     Indication: PROPHYLAXIS OF NAUSEA AND VOMITING
     Dosage: UNK
     Route: 062
     Dates: start: 20140304, end: 20140307
  2. TRAMADOL [Concomitant]
     Dosage: 50 MG, Q6H
  3. ACETYLSALICYLIC ACID [Concomitant]
     Dosage: 350 MG, BID
  4. CELEBREX [Concomitant]
     Dosage: UNK, QD
  5. OMEPRAZOLE MAGNESIUM [Concomitant]
     Dosage: UNK, QD

REACTIONS (8)
  - Angle closure glaucoma [Recovered/Resolved with Sequelae]
  - Blindness unilateral [Recovered/Resolved with Sequelae]
  - Intraocular pressure increased [Recovered/Resolved with Sequelae]
  - Headache [Recovered/Resolved with Sequelae]
  - Eye pain [Recovered/Resolved with Sequelae]
  - Vision blurred [Recovered/Resolved with Sequelae]
  - Vitreous floaters [Recovered/Resolved with Sequelae]
  - Arthralgia [Recovering/Resolving]
